FAERS Safety Report 19548806 (Version 2)
Quarter: 2021Q3

REPORT INFORMATION
  Report Type: Spontaneous
  Country: US (occurrence: US)
  Receive Date: 20210714
  Receipt Date: 20210802
  Transmission Date: 20211014
  Serious: Yes (Hospitalization)
  Sender: FDA-Public Use
  Company Number: US-CELGENEUS-USA-20210701846

PATIENT
  Age: 63 Year
  Sex: Female

DRUGS (16)
  1. REVLIMID [Suspect]
     Active Substance: LENALIDOMIDE
     Dosage: 22.5?25 MILLIGRAM
     Route: 048
     Dates: start: 201602
  2. ALBUTEROL?IPRATORIUM [Concomitant]
     Indication: LUNG NEOPLASM MALIGNANT
     Dosage: 2.5 MG?05 MG/3 ML
     Route: 055
  3. RITALIN [Concomitant]
     Active Substance: METHYLPHENIDATE HYDROCHLORIDE
     Indication: SOMNOLENCE
     Route: 065
     Dates: start: 20201124
  4. REVLIMID [Suspect]
     Active Substance: LENALIDOMIDE
     Dosage: 25 MILLIGRAM
     Route: 048
     Dates: start: 201408
  5. REVLIMID [Suspect]
     Active Substance: LENALIDOMIDE
     Dosage: 25 MILLIGRAM
     Route: 048
     Dates: start: 201501
  6. METHYLPHENIDATE. [Concomitant]
     Active Substance: METHYLPHENIDATE
     Indication: PRODUCT USED FOR UNKNOWN INDICATION
     Dosage: 10 MILLIGRAM
     Route: 048
  7. FOLBIC [Concomitant]
     Active Substance: CYANOCOBALAMIN\FOLIC ACID\PYRIDOXINE
     Indication: PRODUCT USED FOR UNKNOWN INDICATION
     Route: 048
  8. MORPHINE [Concomitant]
     Active Substance: MORPHINE
     Indication: PAIN
     Route: 065
     Dates: start: 20201124
  9. PANTOPRAZOLE [Concomitant]
     Active Substance: PANTOPRAZOLE
     Indication: PRODUCT USED FOR UNKNOWN INDICATION
     Dosage: 40 MILLIGRAM
     Route: 048
  10. REVLIMID [Suspect]
     Active Substance: LENALIDOMIDE
     Dosage: 12.5 MILLIGRAM
     Route: 048
     Dates: start: 201412
  11. ASPIRIN. [Concomitant]
     Active Substance: ASPIRIN
     Indication: PRODUCT USED FOR UNKNOWN INDICATION
     Route: 048
  12. REVLIMID [Suspect]
     Active Substance: LENALIDOMIDE
     Indication: PLASMA CELL MYELOMA
     Dosage: 10 MILLIGRAM
     Route: 048
     Dates: start: 201404
  13. REVLIMID [Suspect]
     Active Substance: LENALIDOMIDE
     Dosage: 25 MILLIGRAM
     Route: 048
     Dates: start: 20200330
  14. ALBUTEROL. [Concomitant]
     Active Substance: ALBUTEROL
     Indication: WHEEZING
     Dosage: 9 MICROGRAM
     Route: 055
  15. LIDOCAINE TOPICAL [Concomitant]
     Active Substance: LIDOCAINE
     Indication: BACK PAIN
     Dosage: 5 PERCENT
     Route: 061
  16. MECLIZINE [Concomitant]
     Active Substance: MECLIZINE HYDROCHLORIDE
     Indication: DIZZINESS
     Dosage: 75 MILLIGRAM
     Route: 048

REACTIONS (1)
  - Lung neoplasm malignant [Recovering/Resolving]

NARRATIVE: CASE EVENT DATE: 20210620
